FAERS Safety Report 6922604-4 (Version None)
Quarter: 2010Q3

REPORT INFORMATION
  Report Type: 
  Country: None (occurrence: None)
  Receive Date: 20100813
  Receipt Date: 20100731
  Transmission Date: 20110219
  Serious: Yes (Hospitalization, Other)
  Sender: FDA-Public Use
  Company Number: PHHY2010CA50660

PATIENT
  Sex: Male

DRUGS (1)
  1. CLOZARIL [Suspect]
     Dosage: UNK
     Dates: start: 19981117

REACTIONS (3)
  - ENDOTRACHEAL INTUBATION [None]
  - HYPOCALCAEMIA [None]
  - MUSCULAR WEAKNESS [None]
